FAERS Safety Report 20980868 (Version 1)
Quarter: 2022Q2

REPORT INFORMATION
  Report Type: Spontaneous
  Country: CN (occurrence: CN)
  Receive Date: 20220620
  Receipt Date: 20220620
  Transmission Date: 20220720
  Serious: Yes (Hospitalization, Other)
  Sender: FDA-Public Use
  Company Number: None

PATIENT
  Age: 69 Year
  Sex: Female
  Weight: 79 kg

DRUGS (16)
  1. CYCLOPHOSPHAMIDE [Suspect]
     Active Substance: CYCLOPHOSPHAMIDE
     Indication: Ovarian cancer
     Dosage: 400 MG ONCE DAILY, CYCLOPHOSPHAMIDE FOR INJECTION (400MG) + 0.9% SODIUM CHLORIDE INJECTION (500ML)
     Route: 041
     Dates: start: 20220211, end: 20220211
  2. CYCLOPHOSPHAMIDE [Suspect]
     Active Substance: CYCLOPHOSPHAMIDE
     Dosage: UNK, QD, DOSE RE INTRODUCED, CYCLOPHOSPHAMIDE FOR INJECTION + 0.9% SODIUM CHLORIDE INJECTION
     Route: 041
  3. SODIUM CHLORIDE [Suspect]
     Active Substance: SODIUM CHLORIDE
     Indication: Medication dilution
     Dosage: 500 ML, QD, CYCLOPHOSPHAMIDE FOR INJECTION (400MG) + 0.9% SODIUM CHLORIDE INJECTION (500ML)
     Route: 041
     Dates: start: 20220211, end: 20220211
  4. SODIUM CHLORIDE [Suspect]
     Active Substance: SODIUM CHLORIDE
     Dosage: UNK, QD, DOSE RE INTRODUCED, CYCLOPHOSPHAMIDE FOR INJECTION + 0.9% SODIUM CHLORIDE INJECTION
     Route: 041
  5. SODIUM CHLORIDE [Suspect]
     Active Substance: SODIUM CHLORIDE
     Dosage: 1000ML, QD,CISPLATIN INJECTION (100MG) + 0.9% SODIUM CHLORIDE INJECTION (1000ML)
     Route: 033
     Dates: start: 20220211, end: 20220211
  6. SODIUM CHLORIDE [Suspect]
     Active Substance: SODIUM CHLORIDE
     Dosage: UNK, QD, DOSE RE INTRODUCED, CISPLATIN + 0.9% SODIUM CHLORIDE
     Route: 033
  7. DEXTROSE MONOHYDRATE [Suspect]
     Active Substance: DEXTROSE MONOHYDRATE
     Indication: Medication dilution
     Dosage: 500 ML, QD, FLUOROURACIL INJECTION (750MG) + 5% GLUCOSE INJECTION (500ML)
     Route: 033
     Dates: start: 20220211, end: 20220211
  8. DEXTROSE MONOHYDRATE [Suspect]
     Active Substance: DEXTROSE MONOHYDRATE
     Dosage: UNK, QD, DOSE RE INTRODUCED, FLUOROURACIL INJECTION + 5% GLUCOSE
     Route: 033
  9. DEXTROSE MONOHYDRATE [Suspect]
     Active Substance: DEXTROSE MONOHYDRATE
     Dosage: 1000 ML, QD, CYTARABINE (0.3G) + 5% GLUCOSE INJECTION (1000ML)
     Route: 033
     Dates: start: 20220211, end: 20220211
  10. DEXTROSE MONOHYDRATE [Suspect]
     Active Substance: DEXTROSE MONOHYDRATE
     Dosage: UNK, QD, DOSE RE INTRODUCED, CYTARABINE + 5% GLUCOSE
     Route: 033
  11. FLUOROURACIL [Suspect]
     Active Substance: FLUOROURACIL
     Indication: Ovarian cancer
     Dosage: 750 MG ONCE DAILY, FLUOROURACIL INJECTION (750MG) + 5% GLUCOSE INJECTION (500ML)
     Route: 033
     Dates: start: 20220211, end: 20220211
  12. FLUOROURACIL [Suspect]
     Active Substance: FLUOROURACIL
     Dosage: UNK, QD, DOSE RE INTRODUCED, FLUOROURACIL INJECTION + 5% GLUCOSE INJECTION
     Route: 033
  13. CYTARABINE [Suspect]
     Active Substance: CYTARABINE
     Indication: Ovarian cancer
     Dosage: 300 MG ONCE DAILY,CYTARABINE (0.3G) + 5% GLUCOSE INJECTION (1000ML)
     Route: 033
     Dates: start: 20220211, end: 20220211
  14. CYTARABINE [Suspect]
     Active Substance: CYTARABINE
     Dosage: UNK, QD, DOSE REINTRODUCED, CYTARABINE + 5% GLUCOSE INJECTION
     Route: 033
  15. CISPLATIN [Suspect]
     Active Substance: CISPLATIN
     Indication: Ovarian cancer
     Dosage: 100 MG, QD, CISPLATIN INJECTION (100MG) + 0.9% SODIUM CHLORIDE INJECTION (1000ML)
     Route: 033
     Dates: start: 20220211, end: 20220211
  16. CISPLATIN [Suspect]
     Active Substance: CISPLATIN
     Dosage: UNK, QD, DOSE REINTRODUCED, CISPLATIN INJECTION + 0.9% SODIUM CHLORIDE INJECTION
     Route: 033

REACTIONS (1)
  - Myelosuppression [Recovering/Resolving]

NARRATIVE: CASE EVENT DATE: 20220224
